FAERS Safety Report 12770832 (Version 1)
Quarter: 2016Q3

REPORT INFORMATION
  Report Type: Spontaneous
  Country: US (occurrence: US)
  Receive Date: 20160922
  Receipt Date: 20160922
  Transmission Date: 20161109
  Serious: Yes (Other)
  Sender: FDA-Public Use
  Company Number: None

PATIENT
  Age: 79 Year
  Sex: Male
  Weight: 78.02 kg

DRUGS (10)
  1. FISH OIL [Concomitant]
     Active Substance: FISH OIL
  2. CENTRUM [Concomitant]
     Active Substance: VITAMINS
  3. OSTEOBYFLEX [Concomitant]
  4. COQ10 [Concomitant]
     Active Substance: UBIDECARENONE
  5. AIAD [Concomitant]
  6. TAMSULOSIN [Suspect]
     Active Substance: TAMSULOSIN
     Indication: PROSTATOMEGALY
     Dosage: 1 6 PM MOUTH
     Route: 048
     Dates: start: 20160908, end: 20160908
  7. LETIO [Concomitant]
  8. PRAVASTATIN. [Concomitant]
     Active Substance: PRAVASTATIN
  9. ASPIRIN. [Concomitant]
     Active Substance: ASPIRIN
  10. SAW PALMETTO [Concomitant]
     Active Substance: SAW PALMETTO

REACTIONS (6)
  - Presyncope [None]
  - Lip swelling [None]
  - Hyperhidrosis [None]
  - Asthenia [None]
  - Dizziness [None]
  - Mouth swelling [None]

NARRATIVE: CASE EVENT DATE: 20160908
